FAERS Safety Report 8812763 (Version 1)
Quarter: 2012Q4

REPORT INFORMATION
  Report Type: 
  Country: US (occurrence: US)
  Receive Date: 20120927
  Receipt Date: 20120927
  Transmission Date: 20130627
  Serious: Yes (Death, Hospitalization)
  Sender: FDA-Public Use
  Company Number: US-ROCHE-1128406

PATIENT
  Sex: Female

DRUGS (9)
  1. AVASTIN [Suspect]
     Indication: BREAST CANCER FEMALE
     Route: 065
     Dates: start: 20060810
  2. AVASTIN [Suspect]
     Indication: BONE NEOPLASM MALIGNANT
  3. AVASTIN [Suspect]
     Indication: BONE NEOPLASM MALIGNANT
  4. HERCEPTIN [Suspect]
     Indication: PRODUCT USED FOR UNKNOWN INDICATION
     Route: 065
  5. ABRAXANE [Concomitant]
  6. ZOMETA [Concomitant]
  7. NAVELBINE [Concomitant]
  8. CARBOPLATIN [Concomitant]
  9. FASLODEX [Concomitant]
     Route: 065
     Dates: start: 20060810

REACTIONS (3)
  - Death [Fatal]
  - Dyspnoea [Unknown]
  - Pneumonia [Unknown]
